FAERS Safety Report 18176971 (Version 1)
Quarter: 2020Q3

REPORT INFORMATION
  Report Type: Spontaneous
  Country: CA (occurrence: CA)
  Receive Date: 20200820
  Receipt Date: 20200820
  Transmission Date: 20201103
  Serious: Yes (Life-Threatening, Hospitalization, Disabling)
  Sender: FDA-Public Use
  Company Number: CA-ASTRAZENECA-2020SF04969

PATIENT
  Age: 88 Year
  Sex: Female

DRUGS (9)
  1. HYDRODIURIL [Concomitant]
     Active Substance: HYDROCHLOROTHIAZIDE
     Route: 065
  2. QUETIAPINE FUMARATE. [Suspect]
     Active Substance: QUETIAPINE FUMARATE
     Indication: ANXIETY
     Route: 048
  3. PREGABALIN. [Suspect]
     Active Substance: PREGABALIN
     Indication: ANXIETY
     Route: 048
  4. AMLODIPINE BESILATE [Concomitant]
     Active Substance: AMLODIPINE BESYLATE
     Route: 065
  5. TENORMIN [Concomitant]
     Active Substance: ATENOLOL
     Route: 065
  6. ATIVAN [Concomitant]
     Active Substance: LORAZEPAM
     Route: 065
  7. CELEXA [Concomitant]
     Active Substance: CITALOPRAM HYDROBROMIDE
     Route: 065
  8. COVERSYL [Concomitant]
     Active Substance: PERINDOPRIL
     Route: 065
  9. REMERON [Concomitant]
     Active Substance: MIRTAZAPINE
     Route: 065

REACTIONS (6)
  - Skull fracture [Unknown]
  - Fall [Unknown]
  - Off label use [Unknown]
  - Concomitant disease aggravated [Unknown]
  - Product use in unapproved indication [Unknown]
  - Cerebral haemorrhage [Unknown]
